FAERS Safety Report 24228232 (Version 1)
Quarter: 2024Q3

REPORT INFORMATION
  Report Type: Spontaneous
  Country: US (occurrence: None)
  Receive Date: 20240819
  Receipt Date: 20240819
  Transmission Date: 20241016
  Serious: No
  Sender: Public
  Company Number: None

PATIENT
  Age: 26 Year
  Sex: Female
  Weight: 63.5 kg

DRUGS (1)
  1. DUPIXENT [Suspect]
     Active Substance: DUPILUMAB
     Indication: Dermatitis atopic
     Dosage: 300 MG SUBCUTANEOUS
     Route: 058
     Dates: start: 20240729

REACTIONS (2)
  - Eczema [None]
  - Hypersensitivity [None]

NARRATIVE: CASE EVENT DATE: 20240815
